FAERS Safety Report 10228225 (Version 1)
Quarter: 2014Q2

REPORT INFORMATION
  Report Type: Spontaneous
  Country: US (occurrence: US)
  Receive Date: 20140610
  Receipt Date: 20140610
  Transmission Date: 20141212
  Serious: Yes (Other)
  Sender: FDA-Public Use
  Company Number: US-BAYER-2014-085391

PATIENT
  Age: 22 Year
  Sex: Female

DRUGS (1)
  1. MIRENA [Suspect]
     Dosage: 20 MCG/24HR, CONT
     Route: 015

REACTIONS (12)
  - Retinal haemorrhage [None]
  - Intracranial pressure increased [None]
  - Benign intracranial hypertension [None]
  - Papilloedema [None]
  - Injury [None]
  - Headache [None]
  - Nausea [None]
  - Dizziness [None]
  - Visual impairment [None]
  - Vision blurred [None]
  - Visual field defect [None]
  - Pain [None]
